FAERS Safety Report 9171075 (Version 1)
Quarter: 2013Q1

REPORT INFORMATION
  Report Type: Spontaneous
  Country: TW (occurrence: None)
  Receive Date: 20130312
  Receipt Date: 20130312
  Transmission Date: 20140127
  Serious: Yes (Hospitalization)
  Sender: FDA-Public Use
  Company Number: FK201300740

PATIENT
  Age: 58 Year
  Sex: Male

DRUGS (3)
  1. FLUOROURACIL (FLUOROURACIL) (FLUOROURACIL) [Suspect]
     Indication: COLON CANCER
  2. IRINOTECAN (IRINOTECAN) [Concomitant]
  3. BEVACIZUMAB (BEVACIZUMAB) [Concomitant]

REACTIONS (5)
  - Hyperammonaemic encephalopathy [None]
  - Nausea [None]
  - Vomiting [None]
  - Renal failure acute [None]
  - Coma scale abnormal [None]
